FAERS Safety Report 6738162-3 (Version None)
Quarter: 2010Q2

REPORT INFORMATION
  Report Type: 
  Country: None (occurrence: None)
  Receive Date: 20100520
  Receipt Date: 20100514
  Transmission Date: 20101027
  Serious: Yes (Other)
  Sender: FDA-Public Use
  Company Number: 1000013856

PATIENT
  Age: 58 Year
  Sex: Female

DRUGS (7)
  1. THYROID TAB [Suspect]
     Indication: HYPOTHYROIDISM
     Dosage: 90 MG (90 MG, 1 IN 1 D), ORAL
     Route: 048
     Dates: start: 20050101, end: 20100401
  2. THYROID TAB [Suspect]
     Indication: HYPOTHYROIDISM
     Dosage: 75 MG, (75 MG, 1 IN 1 D), ORAL; 60 MG (60 MG, 1 IN 1 D), ORAL
     Route: 048
     Dates: start: 20100401, end: 20100506
  3. THYROID TAB [Suspect]
     Indication: HYPOTHYROIDISM
     Dosage: 75 MG, (75 MG, 1 IN 1 D), ORAL; 60 MG (60 MG, 1 IN 1 D), ORAL
     Route: 048
     Dates: start: 20100507
  4. THYROID TAB [Suspect]
  5. UROCIT-K [Concomitant]
  6. PROMETRIUM [Concomitant]
  7. VIVELLE-DOT [Concomitant]

REACTIONS (3)
  - HYPERTENSION [None]
  - INSOMNIA [None]
  - TACHYCARDIA [None]
